FAERS Safety Report 9002571 (Version 1)
Quarter: 2013Q1

REPORT INFORMATION
  Report Type: Spontaneous
  Country: CA (occurrence: CA)
  Receive Date: 20130107
  Receipt Date: 20130107
  Transmission Date: 20140127
  Serious: Yes (Death)
  Sender: FDA-Public Use
  Company Number: PHHY2012CA113416

PATIENT
  Age: 62 Year
  Sex: Male

DRUGS (5)
  1. ZOMETA [Suspect]
     Indication: RENAL CELL CARCINOMA
     Dosage: 4 MG, EVERY 2 WEEKS
     Route: 042
     Dates: start: 20121108
  2. ZOMETA [Suspect]
     Dosage: UNK UKN, UNK
     Route: 042
     Dates: start: 20121114
  3. ZOMETA [Suspect]
     Dosage: UNK UKN, UNK
     Route: 042
     Dates: start: 20121126
  4. ZOMETA [Suspect]
     Dosage: 4 MG, EVERY 8-10 DAYS
     Route: 042
     Dates: end: 20121221
  5. PAMIDRONATE [Suspect]
     Indication: RENAL CELL CARCINOMA
     Route: 042

REACTIONS (7)
  - Death [Fatal]
  - Hypercalcaemia [Unknown]
  - Heart rate increased [Unknown]
  - Hypoalbuminaemia [Unknown]
  - Confusional state [Unknown]
  - Somnolence [Unknown]
  - Therapeutic response decreased [Unknown]
